FAERS Safety Report 7807479-3 (Version None)
Quarter: 2011Q4

REPORT INFORMATION
  Report Type: 
  Country: None (occurrence: None)
  Receive Date: 20111011
  Receipt Date: 20111006
  Transmission Date: 20120403
  Serious: Yes (Other)
  Sender: FDA-Public Use
  Company Number: PHHY2010CA10487

PATIENT
  Sex: Male

DRUGS (2)
  1. SANDOSTATIN LAR [Suspect]
     Dosage: 60 MG, EVERY 3 WEEKS
     Route: 030
  2. SANDOSTATIN LAR [Suspect]
     Indication: SMALL INTESTINE CARCINOMA
     Dosage: 40 MG, EVERY 3 WEEKS
     Route: 030
     Dates: start: 20090812

REACTIONS (8)
  - INJECTION SITE HAEMORRHAGE [None]
  - BLOOD PRESSURE INCREASED [None]
  - ANXIETY [None]
  - HYPOGLYCAEMIA [None]
  - DIZZINESS [None]
  - FLUSHING [None]
  - HEART RATE IRREGULAR [None]
  - DIARRHOEA [None]
